FAERS Safety Report 4317239-6 (Version None)
Quarter: 2004Q1

REPORT INFORMATION
  Report Type: 
  Country: None (occurrence: None)
  Receive Date: 20040312
  Receipt Date: 20040301
  Transmission Date: 20041129
  Serious: Yes (Death)
  Sender: FDA-Public Use
  Company Number: 04P-144-0251972-00

PATIENT
  Age: 41 Year
  Sex: Male

DRUGS (3)
  1. KALETRA [Suspect]
     Indication: HIV INFECTION
     Dosage: 3 CAPSULE, 2 IN 1 D, PER ORAL
     Route: 048
     Dates: start: 20020430
  2. IPRATROPIUM BROMIDE [Concomitant]
  3. ZIDOVUDINE W/LAMIVUDINE [Concomitant]

REACTIONS (1)
  - RESPIRATORY FAILURE [None]
